FAERS Safety Report 7260025-8 (Version None)
Quarter: 2011Q1

REPORT INFORMATION
  Report Type: 
  Country: None (occurrence: None)
  Receive Date: 20110130
  Receipt Date: 20101018
  Transmission Date: 20110831
  Serious: No
  Sender: FDA-Public Use
  Company Number: US-ABBOTT-10P-163-0679203-00

PATIENT
  Age: 13 Year
  Sex: Male

DRUGS (6)
  1. INDOCIN [Concomitant]
     Indication: ANKYLOSING SPONDYLITIS
  2. ZANTAC [Concomitant]
     Indication: ADVERSE DRUG REACTION
  3. INDOCIN [Concomitant]
     Indication: PAIN
  4. ZANTAC [Concomitant]
     Indication: PROPHYLAXIS
  5. HUMIRA [Suspect]
     Indication: ANKYLOSING SPONDYLITIS
     Dates: start: 20100701
  6. HUMIRA [Suspect]

REACTIONS (7)
  - NAUSEA [None]
  - HEADACHE [None]
  - BACK PAIN [None]
  - ARTHRALGIA [None]
  - INJECTION SITE INDURATION [None]
  - ANKYLOSING SPONDYLITIS [None]
  - INJECTION SITE PAIN [None]
